FAERS Safety Report 16575939 (Version 1)
Quarter: 2019Q3

REPORT INFORMATION
  Report Type: Spontaneous
  Country: GB (occurrence: GB)
  Receive Date: 20190716
  Receipt Date: 20190716
  Transmission Date: 20191004
  Serious: Yes (Other)
  Sender: FDA-Public Use
  Company Number: GB-ROCHE-2355081

PATIENT
  Sex: Female

DRUGS (1)
  1. PERJETA [Suspect]
     Active Substance: PERTUZUMAB
     Indication: BREAST CANCER
     Dosage: LOADING DOSE
     Route: 065
     Dates: start: 201905, end: 201905

REACTIONS (2)
  - Abscess intestinal [Recovered/Resolved]
  - Intestinal perforation [Recovered/Resolved]

NARRATIVE: CASE EVENT DATE: 201905
